FAERS Safety Report 9100303 (Version 7)
Quarter: 2014Q3

REPORT INFORMATION
  Report Type: Spontaneous
  Country: US (occurrence: US)
  Receive Date: 20130215
  Receipt Date: 20140711
  Transmission Date: 20150326
  Serious: Yes (Hospitalization, Other)
  Sender: FDA-Public Use
  Company Number: US-009507513-1302USA006744

PATIENT
  Sex: Female
  Weight: 107.48 kg

DRUGS (1)
  1. NUVARING [Suspect]
     Active Substance: ETHINYL ESTRADIOL\ETONOGESTREL
     Indication: CONTRACEPTION
     Dosage: UNK
     Route: 067
     Dates: start: 200908, end: 201011

REACTIONS (37)
  - Dizziness [Unknown]
  - Hypoaesthesia [Unknown]
  - Diarrhoea [Unknown]
  - Nausea [Unknown]
  - Pleural effusion [Unknown]
  - Anaemia [Unknown]
  - Stent placement [Unknown]
  - Superficial vein prominence [Unknown]
  - Lymphadenopathy mediastinal [Unknown]
  - Renal disorder [Unknown]
  - Palpitations [Unknown]
  - Muscle spasms [Unknown]
  - Asthma [Unknown]
  - Headache [Unknown]
  - Neuropathy peripheral [Unknown]
  - Non-Hodgkin^s lymphoma [Not Recovered/Not Resolved]
  - Jugular vein thrombosis [Unknown]
  - Migraine [Unknown]
  - Angina pectoris [Unknown]
  - Swelling face [Unknown]
  - Superior vena cava syndrome [Unknown]
  - Premature delivery [Unknown]
  - Coagulopathy [Unknown]
  - Ovarian cyst [Unknown]
  - Pyrexia [Unknown]
  - Dyspnoea exertional [Unknown]
  - Abdominal pain [Unknown]
  - Hilar lymphadenopathy [Unknown]
  - Plasminogen activator inhibitor polymorphism [Unknown]
  - Road traffic accident [Unknown]
  - Respiratory disorder [Unknown]
  - Metastases to liver [Unknown]
  - Lip swelling [Unknown]
  - Peripheral swelling [Unknown]
  - Fatigue [Unknown]
  - Caesarean section [Unknown]
  - Maternal exposure before pregnancy [Unknown]

NARRATIVE: CASE EVENT DATE: 20091008
